FAERS Safety Report 7935668-6 (Version None)
Quarter: 2011Q4

REPORT INFORMATION
  Report Type: 
  Country: None (occurrence: None)
  Receive Date: 20111121
  Receipt Date: 20111110
  Transmission Date: 20120403
  Serious: Yes (Other)
  Sender: FDA-Public Use
  Company Number: AUR-APL-2011-05168

PATIENT
  Age: 71 Year
  Sex: Female

DRUGS (13)
  1. POTASSIUM CHLORIDE [Suspect]
     Indication: PRODUCT USED FOR UNKNOWN INDICATION
  2. BUMETANIDE [Suspect]
     Indication: PRODUCT USED FOR UNKNOWN INDICATION
  3. SPIRONOLACTONE [Suspect]
     Indication: PRODUCT USED FOR UNKNOWN INDICATION
  4. LORAZEPAM [Suspect]
     Indication: PRODUCT USED FOR UNKNOWN INDICATION
  5. METOLAZONE [Suspect]
     Indication: PRODUCT USED FOR UNKNOWN INDICATION
  6. DILTIAZEM [Suspect]
     Indication: PRODUCT USED FOR UNKNOWN INDICATION
  7. WARFARIN SODIUM [Concomitant]
     Indication: PRODUCT USED FOR UNKNOWN INDICATION
  8. METOPROLOL TARTRATE [Suspect]
     Indication: PRODUCT USED FOR UNKNOWN INDICATION
  9. FOLIC ACID [Suspect]
     Indication: PRODUCT USED FOR UNKNOWN INDICATION
  10. LATANOPROST [Suspect]
     Indication: PRODUCT USED FOR UNKNOWN INDICATION
  11. CETIRIZINE [Suspect]
     Indication: PRODUCT USED FOR UNKNOWN INDICATION
  12. SIMVASTATIN [Suspect]
     Indication: PRODUCT USED FOR UNKNOWN INDICATION
  13. TIKOSYN [Suspect]
     Indication: ATRIAL FIBRILLATION

REACTIONS (12)
  - DRUG INTERACTION [None]
  - MALAISE [None]
  - MENTAL IMPAIRMENT [None]
  - VENTRICULAR EXTRASYSTOLES [None]
  - NASAL DISORDER [None]
  - DIARRHOEA [None]
  - DYSPNOEA [None]
  - VISUAL IMPAIRMENT [None]
  - EYE OEDEMA [None]
  - OEDEMA [None]
  - BLOOD CREATININE INCREASED [None]
  - BLOOD ELECTROLYTES ABNORMAL [None]
